FAERS Safety Report 9945318 (Version 1)
Quarter: 2014Q1

REPORT INFORMATION
  Report Type: Report from Study
  Country: US (occurrence: US)
  Receive Date: 20140303
  Receipt Date: 20140303
  Transmission Date: 20141002
  Serious: No
  Sender: FDA-Public Use
  Company Number: US-ABBVIE-13P-163-1049467-00

PATIENT
  Age: 64 Year
  Sex: Female

DRUGS (10)
  1. HUMIRA [Suspect]
     Indication: CROHN^S DISEASE
     Dates: start: 20121030
  2. ASACOL [Concomitant]
     Indication: PRODUCT USED FOR UNKNOWN INDICATION
  3. PAROXETINE CR [Concomitant]
     Indication: DEPRESSION
     Dosage: 25 MG DAILY
  4. ALBUTEROL [Concomitant]
     Indication: ASTHMA
     Dosage: INHALER, AS NEEDED
  5. FLONASE [Concomitant]
     Indication: HYPERSENSITIVITY
     Dosage: AS NEEDED; HASN^T USED IN MONTHS
  6. CENTRUM [Concomitant]
     Indication: PRODUCT USED FOR UNKNOWN INDICATION
     Dosage: CHEWABLES
  7. CALCIUM [Concomitant]
     Indication: NUTRITIONAL SUPPLEMENTATION
  8. GARLIC [Concomitant]
     Indication: PRODUCT USED FOR UNKNOWN INDICATION
     Dosage: 200 MG DAILY
  9. VITAMIN D [Concomitant]
     Indication: PRODUCT USED FOR UNKNOWN INDICATION
     Dosage: 1 DROP DAILY
  10. OMEGA 3 FISH OIL [Concomitant]
     Indication: PRODUCT USED FOR UNKNOWN INDICATION
     Dosage: 1 TSP DAILY

REACTIONS (1)
  - Sinusitis [Not Recovered/Not Resolved]
